FAERS Safety Report 8351860-3 (Version None)
Quarter: 2012Q2

REPORT INFORMATION
  Report Type: 
  Country: None (occurrence: None)
  Receive Date: 20120511
  Receipt Date: 20120503
  Transmission Date: 20120825
  Serious: Yes (Death, Other)
  Sender: FDA-Public Use
  Company Number: US-AMGEN-USASP2012026116

PATIENT
  Age: 60 Year
  Sex: Male
  Weight: 97.052 kg

DRUGS (6)
  1. NEUPOGEN [Suspect]
     Indication: PRODUCT USED FOR UNKNOWN INDICATION
     Dosage: 480 MUG, UNK
     Route: 058
     Dates: start: 20111216, end: 20120316
  2. CISPLATIN [Concomitant]
     Indication: BLADDER CANCER
     Dosage: UNK
     Route: 042
     Dates: start: 20110101, end: 20120410
  3. TAXOL [Concomitant]
     Indication: BLADDER CANCER
     Dosage: UNK
     Route: 042
     Dates: start: 20110101, end: 20120410
  4. ARANESP [Suspect]
     Indication: ANAEMIA
     Dosage: 300 MUG, QMO, PRN HGB BELOW 10
     Route: 058
     Dates: start: 20120203, end: 20120314
  5. NEUPOGEN [Suspect]
     Dosage: 480 MUG, UNK
     Route: 058
     Dates: start: 20111216, end: 20120316
  6. ZOMETA [Concomitant]
     Indication: METASTASES TO BONE
     Dosage: 4MG/5ML, QMO
     Route: 042
     Dates: start: 20120110, end: 20120319

REACTIONS (4)
  - DEATH [None]
  - METASTASES TO BONE [None]
  - ASCITES [None]
  - HAEMATURIA [None]
